FAERS Safety Report 7575797-2 (Version None)
Quarter: 2011Q2

REPORT INFORMATION
  Report Type: 
  Country: None (occurrence: None)
  Receive Date: 20110628
  Receipt Date: 20110616
  Transmission Date: 20111010
  Serious: No
  Sender: FDA-Public Use
  Company Number: US-BIOGENIDEC-2011BI022358

PATIENT
  Age: 49 Year
  Sex: Female

DRUGS (2)
  1. VESICARE [Concomitant]
     Dates: start: 20110601
  2. TYSABRI [Suspect]
     Indication: MULTIPLE SCLEROSIS
     Route: 042
     Dates: start: 20110601

REACTIONS (2)
  - DEHYDRATION [None]
  - ALOPECIA [None]
